FAERS Safety Report 18053792 (Version 2)
Quarter: 2020Q4

REPORT INFORMATION
  Report Type: Spontaneous
  Country: NZ (occurrence: NZ)
  Receive Date: 20200722
  Receipt Date: 20201012
  Transmission Date: 20210113
  Serious: Yes (Death, Hospitalization, Other)
  Sender: FDA-Public Use
  Company Number: NZ-MYLANLABS-2020M1066395

PATIENT
  Age: 91 Year
  Sex: Male

DRUGS (19)
  1. ALENDRONIC ACID W/COLECALCIFEROL [Concomitant]
     Active Substance: ALENDRONATE SODIUM\CHOLECALCIFEROL
     Dosage: 1 WEEKLY
  2. LACTULOSE. [Concomitant]
     Active Substance: LACTULOSE
     Dosage: 15 MIS BD
  3. HYOSCINE [Concomitant]
     Active Substance: SCOPOLAMINE
     Dosage: 20 MILLIGRAM, PRN
     Route: 058
  4. DOCUSATE SODIUM + SENNA [Concomitant]
     Active Substance: DOCUSATE SODIUM\SENNOSIDE A\SENNOSIDE B
     Dosage: 2 TABS BD
  5. DONEPEZIL. [Concomitant]
     Active Substance: DONEPEZIL
     Dosage: 10 MILLIGRAM, AM
  6. HYDROXOCOBALAMIN [Concomitant]
     Active Substance: HYDROXOCOBALAMIN
     Dosage: 1 MILLIGRAM, 3XMONTHS
  7. LORAZEPAM. [Concomitant]
     Active Substance: LORAZEPAM
     Dosage: ? TABLET PRN UP TO QID
  8. ESCITALOPRAM [Concomitant]
     Active Substance: ESCITALOPRAM OXALATE
     Dosage: 10 MILLIGRAM, AM
  9. MICONAZOLE. [Concomitant]
     Active Substance: MICONAZOLE
     Dosage: APPLY SPARINGLY TDS/PRN
  10. LEVODOPA-CARBIDOPA [Concomitant]
     Active Substance: CARBIDOPA\LEVODOPA
     Dosage: 1 ? MANE 2 TABLETS MIDDAY, 1 TABLET 1700
  11. LEVODOPA-CARBIDOPA [Concomitant]
     Active Substance: CARBIDOPA\LEVODOPA
     Dosage: ? TABLET NOCTE
  12. CLOZARIL [Suspect]
     Active Substance: CLOZAPINE
     Indication: SCHIZOPHRENIA
     Dosage: UNK
     Route: 048
     Dates: start: 20170901
  13. FLUTICASONE. [Concomitant]
     Active Substance: FLUTICASONE
     Dosage: 2 SPRAYS EACH NOSTRIL
  14. CLOZARIL [Suspect]
     Active Substance: CLOZAPINE
     Indication: DEMENTIA
     Dosage: UNK
     Dates: start: 201708
  15. FLUDROCORTISONE [Concomitant]
     Active Substance: FLUDROCORTISONE
     Dosage: 50 MICROGRAM, AM
  16. MIDAZOLAM. [Concomitant]
     Active Substance: MIDAZOLAM
     Dosage: PRN EVERY 2 HOURS AS REQUIRED PRN
     Route: 058
  17. CLOZARIL [Suspect]
     Active Substance: CLOZAPINE
     Indication: PSYCHOTIC DISORDER
     Dosage: ? AT 1200, 1 AT 1600, 1 AT 2100
     Dates: start: 20200706
  18. PARACETAMOL AL [Concomitant]
     Dosage: 1 GRAM, TID
  19. MORPHINE SULFATE. [Concomitant]
     Active Substance: MORPHINE SULFATE
     Dosage: 2.5 MILLILITER, PRN
     Route: 058

REACTIONS (8)
  - Psychotic disorder [Unknown]
  - Mental impairment [Not Recovered/Not Resolved]
  - Somnolence [Not Recovered/Not Resolved]
  - General physical health deterioration [Not Recovered/Not Resolved]
  - Pneumonia aspiration [Fatal]
  - Neuropsychiatric symptoms [Unknown]
  - Confusional state [Unknown]
  - Fall [Recovered/Resolved]

NARRATIVE: CASE EVENT DATE: 2020
